FAERS Safety Report 18898043 (Version 1)
Quarter: 2021Q1

REPORT INFORMATION
  Report Type: Spontaneous
  Country: NO (occurrence: NO)
  Receive Date: 20210216
  Receipt Date: 20210216
  Transmission Date: 20210420
  Serious: Yes (Disabling)
  Sender: FDA-Public Use
  Company Number: NVSC2021NO029936

PATIENT
  Age: 17 Year
  Sex: Male

DRUGS (2)
  1. METHOTREXATE. [Concomitant]
     Active Substance: METHOTREXATE
     Indication: PSORIASIS
     Dosage: L04AX03 ? METOTREKSAT ?
     Route: 048
     Dates: end: 2019
  2. FLUOXETIN SANDOZ [Suspect]
     Active Substance: FLUOXETINE HYDROCHLORIDE
     Indication: DYSMORPHISM
     Dosage: UNK (N06AB03 ? FLUOKSETIN)
     Route: 048
     Dates: start: 2018, end: 201910

REACTIONS (5)
  - Sleep disorder [Not Recovered/Not Resolved]
  - Sexual dysfunction [Not Recovered/Not Resolved]
  - Erectile dysfunction [Unknown]
  - Male reproductive tract disorder [Unknown]
  - Male orgasmic disorder [Unknown]

NARRATIVE: CASE EVENT DATE: 2018
